FAERS Safety Report 24046591 (Version 3)
Quarter: 2024Q3

REPORT INFORMATION
  Report Type: Spontaneous
  Country: ES (occurrence: ES)
  Receive Date: 20240703
  Receipt Date: 20240909
  Transmission Date: 20241016
  Serious: Yes (Hospitalization, Other)
  Sender: FRESENIUS KABI
  Company Number: ES-BAXTER-2024BAX018311

PATIENT
  Age: 67 Year
  Sex: Female
  Weight: 69.1 kg

DRUGS (69)
  1. ACETAMINOPHEN [Suspect]
     Active Substance: ACETAMINOPHEN
     Indication: Premedication
     Dosage: 1000 MG
     Route: 042
     Dates: start: 20240425, end: 20240425
  2. ACETAMINOPHEN [Suspect]
     Active Substance: ACETAMINOPHEN
     Indication: Product used for unknown indication
     Dosage: 1000 MG
     Route: 065
     Dates: start: 20240408, end: 20240408
  3. ACETAMINOPHEN [Suspect]
     Active Substance: ACETAMINOPHEN
     Dosage: 1000 MG
     Route: 048
     Dates: start: 20240425, end: 20240425
  4. ACETAMINOPHEN [Suspect]
     Active Substance: ACETAMINOPHEN
     Dosage: UNK
     Route: 065
     Dates: start: 20240226
  5. ACETAMINOPHEN [Suspect]
     Active Substance: ACETAMINOPHEN
     Dosage: 1000 MG
     Route: 065
     Dates: start: 20240408, end: 20240408
  6. ACETAMINOPHEN [Suspect]
     Active Substance: ACETAMINOPHEN
     Dosage: UNK, ONGOING?ROUTE: UNKNOWN ROUTE
     Dates: start: 20240506
  7. ACETAMINOPHEN [Suspect]
     Active Substance: ACETAMINOPHEN
     Dosage: 1000 MG
     Dates: start: 20240418, end: 20240418
  8. CARBOPLATIN [Suspect]
     Active Substance: CARBOPLATIN
     Indication: Diffuse large B-cell lymphoma stage I
     Dosage: 2 AUC, CYCLE 3, ONGOING, AS A PART OF R-ICE REGIMEN?FORM OF ADMIN - INFUSION
     Route: 042
     Dates: start: 20240424
  9. CARBOPLATIN [Suspect]
     Active Substance: CARBOPLATIN
     Dosage: 5 AUC, CYCLE 1, AS A PART OF R-ICE REGIMEN?FORM OF ADMIN- INFUSION
     Route: 042
     Dates: start: 20240206, end: 20240206
  10. CARBOPLATIN [Suspect]
     Active Substance: CARBOPLATIN
     Dosage: 5 MG/M2, CYCLE 1, AS A PART OF R-ICE REGIMEN?FORM OF ADMIN - INFUSION
     Route: 042
     Dates: start: 20240321, end: 20240321
  11. CALCIUM [Suspect]
     Active Substance: CALCIUM
     Indication: Product used for unknown indication
     Dosage: UNK, ONGOING
     Dates: start: 20240226
  12. SULFAMETHOXAZOLE [Suspect]
     Active Substance: SULFAMETHOXAZOLE
     Indication: Product used for unknown indication
     Dosage: UNK, ONGOING
     Dates: start: 20240226
  13. ETOPOSIDE [Suspect]
     Active Substance: ETOPOSIDE
     Indication: Diffuse large B-cell lymphoma stage I
     Dosage: 50 MG/M2, AS A PART OF R-ICE REGIMEN?FOA-INFUSION
     Dates: start: 20240425
  14. ETOPOSIDE [Suspect]
     Active Substance: ETOPOSIDE
     Dosage: UNK, CYCLE 1, AS A PART OF R-ICE REGIMEN?FOA-INFUSION
     Route: 042
     Dates: start: 20240205, end: 20240207
  15. ETOPOSIDE [Suspect]
     Active Substance: ETOPOSIDE
     Dosage: 50 MG/M2, CYCLE 3, AS A PART OF R-ICE REGIMEN?FOA-INFUSION
     Route: 042
     Dates: start: 20240423, end: 20240425
  16. ETOPOSIDE [Suspect]
     Active Substance: ETOPOSIDE
     Dosage: UNK, CYCLE 2, AS A PART OF R-ICE REGIMEN?FOA-INFUSION
     Route: 042
     Dates: start: 20240320, end: 20240322
  17. ETOPOSIDE [Suspect]
     Active Substance: ETOPOSIDE
     Dosage: 50 MG/M2, AS A PART OF R-ICE REGIMEN?FOA-INFUSION
     Route: 042
     Dates: start: 20240424
  18. EPCORITAMAB [Suspect]
     Active Substance: EPCORITAMAB
     Indication: Diffuse large B-cell lymphoma stage I
     Dosage: 0.8 MG, RE-PRIMING INTERMEDIATE DOSE?FOA-CONCENTRATE FOR SOLUTION FOR INJECTION
     Route: 058
     Dates: start: 20240307, end: 20240307
  19. EPCORITAMAB [Suspect]
     Active Substance: EPCORITAMAB
     Dosage: 48 MG, C2D15, ONGOING, FULL DOSE, LATEST DOSE ADMINISTERED PRIOR TO THE EVENT ONSET?FOA-CONCENTRATE
     Route: 058
     Dates: start: 20240418
  20. EPCORITAMAB [Suspect]
     Active Substance: EPCORITAMAB
     Dosage: 0.8MG, RE-PRIMING DOSE 1?FOA-CONCENTRATE FOR SOLUTION FOR INJECTION
     Route: 058
     Dates: start: 20240229, end: 20240229
  21. EPCORITAMAB [Suspect]
     Active Substance: EPCORITAMAB
     Dosage: 48 MG, CYCLE 3 DAY 8 (C3D8)?FOA-CONCENTRATE FOR SOLUTION FOR INJECTION
     Route: 058
     Dates: start: 20240503
  22. EPCORITAMAB [Suspect]
     Active Substance: EPCORITAMAB
     Dosage: UNK, C2D8 FORMULATION: INFUSION?FOA-CONCENTRATE FOR SOLUTION FOR INJECTION
     Route: 058
     Dates: start: 20240410, end: 20240410
  23. EPCORITAMAB [Suspect]
     Active Substance: EPCORITAMAB
     Dosage: UNK, C2D1?FOA-CONCENTRATE FOR SOLUTION FOR INJECTION
     Route: 058
     Dates: start: 20240322, end: 20240322
  24. EPCORITAMAB [Suspect]
     Active Substance: EPCORITAMAB
     Dosage: 48 MG?FOA-CONCENTRATE FOR SOLUTION FOR INJECTION
     Route: 058
     Dates: start: 20240425
  25. EPCORITAMAB [Suspect]
     Active Substance: EPCORITAMAB
     Dosage: 48 MG, FIRST FULL DOSE, RE-PRIMING 1?FOA-CONCENTRATE FOR SOLUTION FOR INJECTION
     Route: 058
     Dates: start: 20240314, end: 20240314
  26. EPCORITAMAB [Suspect]
     Active Substance: EPCORITAMAB
     Dosage: 0.16 MG, CYCLE 1, PRIMING DOSE?FOA-CONCENTRATE FOR SOLUTION FOR INJECTION
     Route: 058
     Dates: start: 20240207, end: 20240207
  27. EPCORITAMAB [Suspect]
     Active Substance: EPCORITAMAB
     Dosage: 48 MG
     Dates: start: 20240520
  28. PREGABALIN [Suspect]
     Active Substance: PREGABALIN
     Indication: Product used for unknown indication
     Dosage: UNK
     Dates: start: 20240226
  29. PREGABALIN [Suspect]
     Active Substance: PREGABALIN
     Dosage: UNK
     Dates: start: 20240226
  30. PREGABALIN [Suspect]
     Active Substance: PREGABALIN
     Dosage: UNK
     Dates: start: 20240226
  31. PREGABALIN [Suspect]
     Active Substance: PREGABALIN
     Dosage: UNK, ONGOING
     Dates: start: 20240226, end: 20240509
  32. LORAZEPAM [Suspect]
     Active Substance: LORAZEPAM
     Indication: Product used for unknown indication
     Dosage: UNK, START DATE: JAN-2023, ONGOING
  33. LORAZEPAM [Suspect]
     Active Substance: LORAZEPAM
     Dosage: UNK, START DATE: JAN-2023
  34. LORAZEPAM [Suspect]
     Active Substance: LORAZEPAM
     Dosage: UNK, START DATE: JAN-2023
  35. ERGOCALCIFEROL [Suspect]
     Active Substance: ERGOCALCIFEROL
     Indication: Product used for unknown indication
     Dosage: UNK
     Dates: start: 20240226
  36. ERGOCALCIFEROL [Suspect]
     Active Substance: ERGOCALCIFEROL
     Dosage: UNK, ONGOING
     Dates: start: 20240226, end: 20240505
  37. ERGOCALCIFEROL [Suspect]
     Active Substance: ERGOCALCIFEROL
     Dosage: UNK
     Dates: start: 20240226
  38. ERGOCALCIFEROL [Suspect]
     Active Substance: ERGOCALCIFEROL
     Dosage: UNK
     Dates: start: 20240226
  39. PREDNISONE [Suspect]
     Active Substance: PREDNISONE
     Indication: Product used for unknown indication
     Dosage: UNK
     Dates: start: 20230301, end: 20230616
  40. APIXABAN [Suspect]
     Active Substance: APIXABAN
     Indication: Product used for unknown indication
     Dosage: UNK
     Dates: start: 20240226, end: 20240505
  41. TRAMADOL [Suspect]
     Active Substance: TRAMADOL\TRAMADOL HYDROCHLORIDE
     Indication: Product used for unknown indication
     Dosage: UNK, ONGOING
     Dates: start: 20240226
  42. TRIMETHOPRIM [Suspect]
     Active Substance: TRIMETHOPRIM
     Indication: Product used for unknown indication
     Dosage: UNK, ONGOING
     Dates: start: 20240226
  43. DEXCHLORPHENIRAMINE [Suspect]
     Active Substance: DEXCHLORPHENIRAMINE
     Indication: Premedication
     Dosage: 12 MG
     Route: 042
     Dates: start: 20240425, end: 20240425
  44. DEXCHLORPHENIRAMINE [Suspect]
     Active Substance: DEXCHLORPHENIRAMINE
     Dosage: 2 MG, DOSAGE FORM: INTRAVENOUS OR ORAL
     Route: 050
     Dates: start: 20240418, end: 20240418
  45. DEXCHLORPHENIRAMINE [Suspect]
     Active Substance: DEXCHLORPHENIRAMINE
     Dosage: 2 MG
     Route: 050
     Dates: start: 20240408, end: 20240408
  46. DEXCHLORPHENIRAMINE [Suspect]
     Active Substance: DEXCHLORPHENIRAMINE
     Dosage: UNK
     Dates: start: 20240418
  47. CYCLOPHOSPHAMIDE [Suspect]
     Active Substance: CYCLOPHOSPHAMIDE
     Indication: Product used for unknown indication
     Dosage: UNK
     Dates: start: 20230301, end: 20230616
  48. VINCRISTINE [Suspect]
     Active Substance: VINCRISTINE
     Indication: Product used for unknown indication
     Dosage: UNK
     Dates: start: 20230301, end: 20230616
  49. DOXORUBICIN [Suspect]
     Active Substance: DOXORUBICIN
     Indication: Product used for unknown indication
     Dosage: UNK
     Dates: start: 20230301, end: 20230616
  50. RITUXIMAB [Suspect]
     Active Substance: RITUXIMAB
     Indication: Diffuse large B-cell lymphoma stage I
     Dosage: UNK, CYCLE 1, AS A PART OF R-ICE REGIMEN?FOA-CONCENTRATE FOR SOLUTION FOR INFUSION
     Route: 042
     Dates: start: 20240205, end: 20240205
  51. RITUXIMAB [Suspect]
     Active Substance: RITUXIMAB
     Dosage: UNK?FOA-CONCENTRATE FOR SOLUTION FOR INFUSION
     Route: 042
     Dates: start: 20230301, end: 20230616
  52. RITUXIMAB [Suspect]
     Active Substance: RITUXIMAB
     Dosage: 375 MG/M2, CYCLE 3, ONGOING, AS A PART OF R-ICE REGIMEN?FOA-CONCENTRATE FOR SOLUTION FOR INFUSION
     Route: 042
     Dates: start: 20240423
  53. RITUXIMAB [Suspect]
     Active Substance: RITUXIMAB
     Dosage: UNK, CYCLE 2, AS A PART OF R-ICE REGIMEN?FOA-CONCENTRATE FOR SOLUTION FOR INFUSION
     Route: 042
     Dates: start: 20240320, end: 20240320
  54. OMEPRAZOLE [Suspect]
     Active Substance: OMEPRAZOLE
     Indication: Product used for unknown indication
     Dosage: UNK, START DATE: 2023, ONGOING
  55. OMEPRAZOLE [Suspect]
     Active Substance: OMEPRAZOLE
     Dosage: UNK, START DATE: 2023
  56. OMEPRAZOLE [Suspect]
     Active Substance: OMEPRAZOLE
     Dosage: UNK, START DATE: 2023
  57. IFOSFAMIDE [Suspect]
     Active Substance: IFOSFAMIDE
     Indication: Diffuse large B-cell lymphoma stage I
     Dosage: 5 MG/M2, CYCLE 3, FORMULATION: INFUSION, AS A PART OF R-ICE REGIMEN
     Route: 042
     Dates: start: 20240424, end: 20240425
  58. IFOSFAMIDE [Suspect]
     Active Substance: IFOSFAMIDE
     Dosage: UNK, CYCLE 1, FORMULATION: INFUSION, AS A PART OF R-ICE REGIMEN
     Route: 042
     Dates: start: 20240206, end: 20240207
  59. IFOSFAMIDE [Suspect]
     Active Substance: IFOSFAMIDE
     Dosage: 5MG/M2, FORMULATION: INFUSION, AS A PART OF R-ICE REGIMEN
     Dates: start: 20240425
  60. IFOSFAMIDE [Suspect]
     Active Substance: IFOSFAMIDE
     Dosage: 5.000 MG/M2, CYCLE 2, FORMULATION: INFUSION, AS A PART OF R-ICE REGIMEN
     Route: 042
     Dates: start: 20240321, end: 20240322
  61. IFOSFAMIDE [Suspect]
     Active Substance: IFOSFAMIDE
     Dosage: UNK, CYCLE 1, FORMULATION: INFUSION, AS A PART OF R-ICE REGIMEN
     Route: 042
     Dates: start: 20240206, end: 20240322
  62. ACYCLOVIR [Suspect]
     Active Substance: ACYCLOVIR
     Indication: Product used for unknown indication
     Dosage: UNK, START DATE: 2023, ONGOING
  63. ONDANSETRON [Concomitant]
     Active Substance: ONDANSETRON
     Indication: Product used for unknown indication
     Dosage: UNK
     Dates: start: 20240506, end: 20240509
  64. TAZOBACTAM [Concomitant]
     Active Substance: TAZOBACTAM
     Indication: Product used for unknown indication
     Dosage: UNK
     Dates: start: 20240506, end: 20240509
  65. PIPERACILLIN [Concomitant]
     Active Substance: PIPERACILLIN
     Indication: Product used for unknown indication
     Dosage: UNK
     Dates: start: 20240506, end: 20240509
  66. METOCLOPRAMIDE [Concomitant]
     Active Substance: METOCLOPRAMIDE
     Indication: Product used for unknown indication
     Dosage: UNK
     Dates: start: 20240506, end: 20240509
  67. MAGNESIUM SULFATE [Concomitant]
     Active Substance: MAGNESIUM SULFATE\MAGNESIUM SULFATE HEPTAHYDRATE
     Indication: Product used for unknown indication
     Dosage: UNK
     Dates: start: 20240506, end: 20240506
  68. METAMIZOLE [Concomitant]
     Active Substance: METAMIZOLE
     Indication: Product used for unknown indication
     Dosage: UNK
     Dates: start: 20240506, end: 20240506
  69. VITAMIN D [Concomitant]
     Active Substance: VITAMIN D NOS
     Indication: Product used for unknown indication
     Dosage: UNK, START DATE: 2011, ONGOING

REACTIONS (1)
  - Febrile neutropenia [Recovered/Resolved]

NARRATIVE: CASE EVENT DATE: 20240506
